FAERS Safety Report 4762728-3 (Version None)
Quarter: 2005Q3

REPORT INFORMATION
  Report Type: 
  Country: None (occurrence: None)
  Receive Date: 20050907
  Receipt Date: 20050826
  Transmission Date: 20060218
  Serious: Yes (Congenital Anomaly)
  Sender: FDA-Public Use
  Company Number: US-ROCHE-416087

PATIENT
  Sex: Male

DRUGS (2)
  1. ACCUTANE [Suspect]
     Dates: start: 19850615, end: 19860615
  2. ACCUTANE [Suspect]
     Dates: start: 19970615, end: 19970615

REACTIONS (7)
  - CONGENITAL HYDROCEPHALUS [None]
  - DRUG EXPOSURE DURING PREGNANCY [None]
  - HYDROCEPHALUS [None]
  - KIDNEY MALFORMATION [None]
  - PREGNANCY [None]
  - RENAL DISORDER [None]
  - STILLBIRTH [None]
